FAERS Safety Report 13368415 (Version 2)
Quarter: 2017Q2

REPORT INFORMATION
  Report Type: Spontaneous
  Country: US (occurrence: US)
  Receive Date: 20170324
  Receipt Date: 20170502
  Transmission Date: 20170830
  Serious: No
  Sender: FDA-Public Use
  Company Number: US-PFIZER INC-2017121029

PATIENT
  Age: 61 Year
  Sex: Female

DRUGS (1)
  1. XELJANZ XR [Suspect]
     Active Substance: TOFACITINIB CITRATE
     Indication: RHEUMATOID ARTHRITIS
     Dosage: 11 MG, DAILY (TAKE IT WITH FOOD ABOUT HALFWAY BETWEEN MEALS)
     Route: 048
     Dates: start: 20161220

REACTIONS (5)
  - Pollakiuria [Unknown]
  - Constipation [Unknown]
  - Drug ineffective [Unknown]
  - Skin discolouration [Unknown]
  - Nausea [Unknown]

NARRATIVE: CASE EVENT DATE: 201612
